FAERS Safety Report 12439725 (Version 2)
Quarter: 2016Q2

REPORT INFORMATION
  Report Type: Report from Study
  Country: US (occurrence: US)
  Receive Date: 20160606
  Receipt Date: 20160610
  Transmission Date: 20160815
  Serious: Yes (Death)
  Sender: FDA-Public Use
  Company Number: US-PFIZER INC-2016280942

PATIENT
  Age: 57 Year
  Sex: Female

DRUGS (2)
  1. DIGOXIN. [Suspect]
     Active Substance: DIGOXIN
     Dosage: UNK
  2. PHENYTOIN SODIUM. [Suspect]
     Active Substance: PHENYTOIN SODIUM
     Indication: ARRHYTHMIA
     Dosage: 250 MG DILUTED IN 5 ML, UNK (OVER 1-3 MIN)
     Route: 042

REACTIONS (1)
  - Acute respiratory failure [Fatal]
